FAERS Safety Report 4471291-6 (Version None)
Quarter: 2004Q4

REPORT INFORMATION
  Report Type: 
  Country: None (occurrence: None)
  Receive Date: 20041011
  Receipt Date: 20041004
  Transmission Date: 20050328
  Serious: Yes (Hospitalization, Disabling)
  Sender: FDA-Public Use
  Company Number: US-MERCK-0410USA00345

PATIENT
  Age: 66 Year
  Sex: Male

DRUGS (4)
  1. VIOXX [Suspect]
     Indication: ARTHRITIS
     Route: 048
     Dates: start: 20000101
  2. VIOXX [Suspect]
     Route: 048
     Dates: end: 20000101
  3. VIOXX [Suspect]
     Indication: INFLAMMATION
     Route: 048
     Dates: start: 20000101
  4. VIOXX [Suspect]
     Route: 048
     Dates: end: 20000101

REACTIONS (1)
  - CEREBROVASCULAR ACCIDENT [None]
